FAERS Safety Report 7407837-5 (Version None)
Quarter: 2011Q2

REPORT INFORMATION
  Report Type: 
  Country: None (occurrence: None)
  Receive Date: 20110412
  Receipt Date: 20110404
  Transmission Date: 20111010
  Serious: Yes (Hospitalization)
  Sender: FDA-Public Use
  Company Number: US-ASTELLAS-2011US001443

PATIENT

DRUGS (23)
  1. BACTRIM [Concomitant]
     Indication: LIVER TRANSPLANT
     Dosage: 500 MG, QOD
     Route: 065
  2. CALCIUM WITH VITAMIN D [Concomitant]
     Indication: BONE DISORDER
     Dosage: 600 MG, BID
     Route: 065
  3. PRILOSEC [Concomitant]
     Indication: GASTROOESOPHAGEAL REFLUX DISEASE
     Dosage: 80 MG, UID/QD
     Route: 065
  4. BUTALBITAL CODEINE [Concomitant]
     Indication: MIGRAINE
     Dosage: 50/325 MG, PRN
     Route: 065
  5. BUTALBITAL CAFFEINE [Concomitant]
     Indication: MIGRAINE
     Dosage: 50/325 MG, PRN
     Route: 065
  6. ADVAIR HFA [Concomitant]
     Indication: ASTHMA
     Dosage: 250 MG, BID
     Route: 065
  7. NORTRIPTYLINE HYDROCHLORIDE [Concomitant]
     Indication: MIGRAINE
     Dosage: 150 MG, UID/QD
     Route: 065
  8. SLOW FE [Concomitant]
     Indication: MINERAL SUPPLEMENTATION
     Dosage: 1 DF, UID/QD
     Route: 065
  9. MULTI-VITAMIN [Concomitant]
     Indication: VITAMIN SUPPLEMENTATION
     Dosage: 1 DF, UID/QD
     Route: 066
  10. VITAMIN D [Concomitant]
     Indication: VITAMIN SUPPLEMENTATION
     Dosage: 1000 MG, UID/QD
     Route: 065
  11. MAGNESIUM OXIDE [Concomitant]
     Indication: GASTRIC DISORDER
     Dosage: 400 MG, UID/QD
     Route: 065
  12. PLAQUENIL [Concomitant]
     Indication: RHEUMATOID ARTHRITIS
     Dosage: 200 MG, BID
     Route: 065
  13. ASPIRIN [Concomitant]
     Indication: ANTICOAGULANT THERAPY
     Dosage: 81 MG, UID/QD
     Route: 065
  14. SPIRIVA [Concomitant]
     Indication: ASTHMA
     Dosage: 18 MG, UID/QD
     Route: 065
  15. TEMAZEPAM [Concomitant]
     Indication: SLEEP DISORDER
     Dosage: .5 MG, PRN
     Route: 065
  16. LIDOSTEM [Concomitant]
     Indication: PAIN
     Dosage: 5 MG, PRN
     Route: 065
  17. PROGRAF [Suspect]
     Indication: LIVER TRANSPLANT
     Dosage: 7 MG, UID/QD
     Route: 048
     Dates: start: 20010604
  18. CLARINET [Concomitant]
     Indication: ASTHMA
     Dosage: 5 MG, UID/QD
     Route: 065
  19. COMBIVENT [Concomitant]
     Indication: ASTHMA
     Dosage: 1 DF, QID
     Route: 065
  20. EPIVIR [Concomitant]
     Indication: HEPATITIS B
     Dosage: 100 MG, UID/QD
     Route: 065
  21. LOSARTAN POTASSIUM [Concomitant]
     Indication: BLOOD PRESSURE
     Dosage: 100 MG, UID/QD
     Route: 065
  22. SINGULAIR [Concomitant]
     Indication: ASTHMA
     Dosage: 10 MG, UID/QD
     Route: 065
  23. DAILY DIGESTIVE [Concomitant]
     Indication: ENZYME SUPPLEMENTATION
     Dosage: UNK
     Route: 065

REACTIONS (1)
  - INTESTINAL OBSTRUCTION [None]
